FAERS Safety Report 5338692-5 (Version None)
Quarter: 2007Q2

REPORT INFORMATION
  Report Type: 
  Country: None (occurrence: None)
  Receive Date: 20070530
  Receipt Date: 20070525
  Transmission Date: 20071010
  Serious: Yes (Hospitalization)
  Sender: FDA-Public Use
  Company Number: A0653012A

PATIENT
  Age: 66 Year
  Sex: Male

DRUGS (5)
  1. AVANDIA [Suspect]
     Dosage: 8MG PER DAY
     Route: 048
     Dates: end: 20070523
  2. METFORMIN HCL [Concomitant]
  3. LASIX [Concomitant]
  4. ASPIRIN [Concomitant]
  5. ACCUPRIL [Concomitant]

REACTIONS (4)
  - ANAEMIA [None]
  - OEDEMA [None]
  - PAIN [None]
  - WEIGHT INCREASED [None]
